FAERS Safety Report 20561044 (Version 1)
Quarter: 2022Q1

REPORT INFORMATION
  Report Type: Spontaneous
  Country: US (occurrence: US)
  Receive Date: 20220307
  Receipt Date: 20220307
  Transmission Date: 20220423
  Serious: Yes (Death)
  Sender: FDA-Public Use
  Company Number: US-PFIZER INC-202200364653

PATIENT
  Age: 86 Year
  Sex: Female

DRUGS (1)
  1. BOSULIF [Suspect]
     Active Substance: BOSUTINIB MONOHYDRATE
     Indication: Myeloid leukaemia
     Dosage: UNK
     Dates: end: 20220213

REACTIONS (1)
  - Death [Fatal]

NARRATIVE: CASE EVENT DATE: 20220213
